FAERS Safety Report 8259953-6 (Version None)
Quarter: 2012Q2

REPORT INFORMATION
  Report Type: 
  Country: None (occurrence: None)
  Receive Date: 20120404
  Receipt Date: 20120322
  Transmission Date: 20120825
  Serious: No
  Sender: FDA-Public Use
  Company Number: US-B.I. PHARMACEUTICALS,INC./RIDGEFIELD-2012-BP-02657BP

PATIENT
  Sex: Female

DRUGS (4)
  1. PRADAXA [Suspect]
     Indication: ANTICOAGULANT THERAPY
  2. PRADAXA [Suspect]
     Indication: ATRIAL FIBRILLATION
     Dosage: 300 MG
     Route: 048
     Dates: start: 20110802, end: 20120120
  3. BUSPIRONE HCL [Concomitant]
     Indication: ANXIETY
  4. ATELVIA [Concomitant]
     Indication: OSTEOPOROSIS
     Dosage: 35 MG

REACTIONS (3)
  - DYSURIA [None]
  - VULVOVAGINAL BURNING SENSATION [None]
  - GENITAL RASH [None]
